FAERS Safety Report 15652904 (Version 1)
Quarter: 2018Q4

REPORT INFORMATION
  Report Type: Spontaneous
  Country: US (occurrence: US)
  Receive Date: 20181123
  Receipt Date: 20181123
  Transmission Date: 20190205
  Serious: Yes (Other)
  Sender: FDA-Public Use
  Company Number: US-NOVOPROD-599164

PATIENT
  Age: 71 Year
  Sex: Male
  Weight: 101.13 kg

DRUGS (4)
  1. TRESIBA [Concomitant]
     Active Substance: INSULIN DEGLUDEC
     Indication: TYPE 2 DIABETES MELLITUS
     Dosage: 56 U, QD
     Route: 058
     Dates: start: 20180417, end: 2018
  2. NOVOLOG [Suspect]
     Active Substance: INSULIN ASPART
     Indication: TYPE 2 DIABETES MELLITUS
     Dosage: SLIDING SCALE
     Route: 058
     Dates: end: 2018
  3. NOVOLOG [Suspect]
     Active Substance: INSULIN ASPART
     Dosage: DECREASED DOSE
     Route: 058
     Dates: start: 2018
  4. TRESIBA [Concomitant]
     Active Substance: INSULIN DEGLUDEC
     Dosage: 52-53 UNITS EVERY EVENING
     Route: 058
     Dates: start: 2018

REACTIONS (3)
  - Blood glucose fluctuation [Recovered/Resolved]
  - Hypoglycaemic unconsciousness [Recovered/Resolved]
  - Insomnia [Recovering/Resolving]

NARRATIVE: CASE EVENT DATE: 2018
